FAERS Safety Report 4376188-8 (Version None)
Quarter: 2004Q2

REPORT INFORMATION
  Report Type: 
  Country: None (occurrence: None)
  Receive Date: 20040607
  Receipt Date: 20040524
  Transmission Date: 20050107
  Serious: Yes (Other)
  Sender: FDA-Public Use
  Company Number: 2004215667DE

PATIENT
  Sex: Female

DRUGS (3)
  1. BEXTRA [Suspect]
     Indication: LOCALISED OSTEOARTHRITIS
     Dosage: ORAL
     Route: 048
     Dates: start: 20040516, end: 20040517
  2. ASPIRIN [Concomitant]
  3. ATORVASTATIN CALCIUM [Concomitant]

REACTIONS (2)
  - PRURITUS [None]
  - RASH [None]
